FAERS Safety Report 9780562 (Version 3)
Quarter: 2014Q1

REPORT INFORMATION
  Report Type: Spontaneous
  Country: CA (occurrence: CA)
  Receive Date: 20131224
  Receipt Date: 20140207
  Transmission Date: 20141002
  Serious: Yes (Hospitalization, Other)
  Sender: FDA-Public Use
  Company Number: CA-AMGEN-CANSP2013089906

PATIENT
  Age: 69 Year
  Sex: Female
  Weight: 68.9 kg

DRUGS (9)
  1. NEUPOGEN [Suspect]
     Indication: PROPHYLAXIS
     Dosage: 300 MUG, DAILY
     Route: 058
     Dates: start: 20131207
  2. DOXORUBICIN [Concomitant]
     Indication: BREAST CANCER
     Dosage: 107 MG, Q2WK
     Route: 042
  3. CYCLOPHOSPHAMIDE [Concomitant]
     Indication: BREAST CANCER
     Dosage: 1070 MG, Q2WK
     Route: 042
  4. DEXAMETHASONE [Concomitant]
     Indication: PROPHYLAXIS
     Dosage: 8 MG STAT
     Route: 048
  5. DEXAMETHASONE [Concomitant]
     Dosage: 20 MG, UNK
     Route: 048
  6. VENLAFAXINE XR [Concomitant]
     Dosage: 37.5 MG, QD
     Route: 048
  7. CALCIUM [Concomitant]
     Dosage: 600 MG, QD
     Route: 048
  8. VITAMIN D                          /00318501/ [Concomitant]
     Dosage: 3000 IU, QD
     Route: 048
  9. ONDANSETRON [Concomitant]
     Dosage: 8 MG, UNK
     Route: 048

REACTIONS (11)
  - Syncope [Recovered/Resolved]
  - Loss of consciousness [Recovered/Resolved]
  - Fall [Recovered/Resolved]
  - Flushing [Recovered/Resolved]
  - Muscle tightness [Recovered/Resolved]
  - Dizziness [Recovered/Resolved]
  - Feeling hot [Recovered/Resolved]
  - Incorrect product storage [Unknown]
  - Blood pressure decreased [Unknown]
  - Nausea [Recovered/Resolved]
  - Vomiting [Recovered/Resolved]
